FAERS Safety Report 4302253-7 (Version None)
Quarter: 2004Q1

REPORT INFORMATION
  Report Type: 
  Country: None (occurrence: None)
  Receive Date: 20040220
  Receipt Date: 20040212
  Transmission Date: 20041129
  Serious: Yes (Death, Hospitalization)
  Sender: FDA-Public Use
  Company Number: D01200400460

PATIENT
  Age: 61 Year
  Sex: Male
  Weight: 75 kg

DRUGS (11)
  1. CISPLATIN [Suspect]
     Indication: SMALL CELL LUNG CANCER EXTENSIVE STAGE
     Dosage: 80 MG/M2 CONT - INTRAVENOUS NOS
     Route: 042
     Dates: start: 20031209, end: 20031209
  2. ETOPOSIDE [Suspect]
     Indication: SMALL CELL LUNG CANCER EXTENSIVE STAGE
     Dosage: 120 MG/M2 GIVEN ON DAYS 1, 2 AND 3, IN A 30-MINUTE INFUSION - INTRAVENOUS NOS
     Route: 042
     Dates: start: 20031209, end: 20031211
  3. MORPHINE [Concomitant]
  4. ZOLEDRONIC ACID [Concomitant]
  5. METAMIZOLE MAGNESIUM [Concomitant]
  6. DEXAMETHASONE [Concomitant]
  7. OMEPRAZOLE [Concomitant]
  8. LACTULOSE [Concomitant]
  9. DIAZEPAM [Concomitant]
  10. MORPHINE [Concomitant]
  11. RED BLOOD CELLS [Concomitant]

REACTIONS (7)
  - AGGRESSION [None]
  - AGITATION [None]
  - ANAEMIA [None]
  - BLOOD CALCIUM DECREASED [None]
  - CARDIO-RESPIRATORY ARREST [None]
  - HYPERGLYCAEMIA [None]
  - STATUS EPILEPTICUS [None]
